FAERS Safety Report 17562492 (Version 2)
Quarter: 2020Q4

REPORT INFORMATION
  Report Type: Spontaneous
  Country: DE (occurrence: DE)
  Receive Date: 20200319
  Receipt Date: 20201222
  Transmission Date: 20210113
  Serious: Yes (Hospitalization, Other)
  Sender: FDA-Public Use
  Company Number: DE-MYLANLABS-2018M1068884

PATIENT
  Age: 59 Year
  Sex: Female

DRUGS (6)
  1. IBUPROFEN. [Suspect]
     Active Substance: IBUPROFEN
     Indication: PAIN
     Dosage: 400 UNK
     Route: 065
  2. DICLOFENAC [Suspect]
     Active Substance: DICLOFENAC
     Indication: PRODUCT USED FOR UNKNOWN INDICATION
     Dosage: 3 DOSAGE FORM, 3XW
     Route: 065
  3. MARCUMAR [Suspect]
     Active Substance: PHENPROCOUMON
     Indication: PRODUCT USED FOR UNKNOWN INDICATION
     Dosage: 3 MG, UNK (3 MG, ACCORDING TO INR), 3 MG, UNK (NACH INR)
     Route: 065
  4. MARCUMAR [Suspect]
     Active Substance: PHENPROCOUMON
     Dosage: 3 MG, ACCORDING TO INR
     Route: 065
  5. IBUPROFEN. [Suspect]
     Active Substance: IBUPROFEN
     Indication: ARTHRALGIA
     Dosage: 600 MG, 3XW (600 MG, 3 X /WOCHE)
     Route: 065
  6. IBUPROFEN. [Suspect]
     Active Substance: IBUPROFEN
     Indication: BACK PAIN
     Dosage: 600 MG, , 3 X PER WEEK
     Route: 065

REACTIONS (7)
  - Anaemia [Unknown]
  - Dizziness [Unknown]
  - Dyspnoea [Unknown]
  - Haematochezia [Unknown]
  - Product prescribing error [Unknown]
  - General physical health deterioration [Unknown]
  - Product monitoring error [Unknown]
